FAERS Safety Report 6728006-8 (Version None)
Quarter: 2010Q2

REPORT INFORMATION
  Report Type: 
  Country: None (occurrence: None)
  Receive Date: 20100512
  Receipt Date: 20100426
  Transmission Date: 20101027
  Serious: Yes (Other)
  Sender: FDA-Public Use
  Company Number: 7002929

PATIENT
  Age: 56 Year
  Sex: Female
  Weight: 58 kg

DRUGS (3)
  1. REBIF [Suspect]
     Indication: MULTIPLE SCLEROSIS
     Dosage: 44 MCG, 3 IN 1 WK, SUBCUTANEOUS
     Route: 058
     Dates: start: 20030331
  2. PROZAC [Concomitant]
  3. BUPROPION XL (BUPROPION) [Concomitant]

REACTIONS (3)
  - INFLUENZA LIKE ILLNESS [None]
  - INJECTION SITE REACTION [None]
  - MALIGNANT MELANOMA [None]
